FAERS Safety Report 21128801 (Version 3)
Quarter: 2023Q2

REPORT INFORMATION
  Report Type: Other
  Country: DE (occurrence: DE)
  Receive Date: 20220725
  Receipt Date: 20230510
  Transmission Date: 20230722
  Serious: Yes (Other)
  Sender: FDA-Public Use
  Company Number: DE-PFIZER INC-202200554500

PATIENT
  Age: 42 Year
  Sex: Female

DRUGS (11)
  1. OCREVUS [Suspect]
     Active Substance: OCRELIZUMAB
     Indication: Relapsing-remitting multiple sclerosis
     Dosage: DATE OF TREATMENT: 28/JUL/2020, 29/JAN/2021
     Route: 042
     Dates: start: 20200123
  2. OCREVUS [Suspect]
     Active Substance: OCRELIZUMAB
     Dosage: 600 MG, FIRST MAINTENANCE DOSE
     Route: 042
     Dates: start: 20190731
  3. OCREVUS [Suspect]
     Active Substance: OCRELIZUMAB
     Dosage: 600 MG
     Route: 042
     Dates: start: 20200728
  4. OCREVUS [Suspect]
     Active Substance: OCRELIZUMAB
     Dosage: 600 MG
     Route: 042
     Dates: start: 20210129
  5. OCREVUS [Suspect]
     Active Substance: OCRELIZUMAB
     Dosage: 300 MG
     Route: 042
     Dates: start: 20181220
  6. OCREVUS [Suspect]
     Active Substance: OCRELIZUMAB
     Dosage: 600 MG, 6TH MAINTENANCE DOSE
     Route: 042
     Dates: start: 20220204
  7. OCREVUS [Suspect]
     Active Substance: OCRELIZUMAB
     Dosage: [10:17 PM] SNEHA SARKAR?04/FEB/2022 (DATE OF THE 6TH MAINTENANCE DOSE), 05/AUG/2022 (DATE OF THE 7TH
     Route: 042
     Dates: start: 20210805
  8. OCREVUS [Suspect]
     Active Substance: OCRELIZUMAB
     Dosage: 300 MG,EVERY 14 DAYS
     Route: 042
     Dates: start: 20181206
  9. COMIRNATY [Suspect]
     Active Substance: TOZINAMERAN
     Indication: COVID-19 immunisation
     Dosage: DOSE 2, SINGLE
     Route: 065
     Dates: start: 20210611, end: 20210611
  10. COMIRNATY [Suspect]
     Active Substance: TOZINAMERAN
     Indication: COVID-19 prophylaxis
     Dosage: DOSE 1, SINGLE
     Route: 065
  11. CHOLECALCIFEROL [Concomitant]
     Active Substance: CHOLECALCIFEROL
     Dosage: 2000 IU, WEEKLY

REACTIONS (12)
  - Hypotension [Recovered/Resolved]
  - Volume blood decreased [Recovered/Resolved]
  - Tongue discomfort [Recovering/Resolving]
  - Fatigue [Recovered/Resolved]
  - Asthenia [Recovered/Resolved]
  - COVID-19 [Recovered/Resolved]
  - Headache [Recovered/Resolved]
  - Body temperature increased [Recovered/Resolved]
  - Drug ineffective [Unknown]
  - Listless [Recovered/Resolved]
  - Pyrexia [Recovered/Resolved]
  - Pain in extremity [Recovered/Resolved]

NARRATIVE: CASE EVENT DATE: 20181206
